FAERS Safety Report 10360747 (Version 4)
Quarter: 2015Q4

REPORT INFORMATION
  Report Type: Spontaneous
  Country: US (occurrence: US)
  Receive Date: 20140804
  Receipt Date: 20151012
  Transmission Date: 20160304
  Serious: Yes (Hospitalization, Other)
  Sender: FDA-Public Use
  Company Number: US-GLAXOSMITHKLINE-A1082895A

PATIENT
  Age: 74 Year
  Sex: Female

DRUGS (21)
  1. NITROGLYCERINE [Concomitant]
     Active Substance: NITROGLYCERIN
  2. ALLER-TEC [Concomitant]
  3. XANAX [Concomitant]
     Active Substance: ALPRAZOLAM
  4. FUROSEMIDE. [Concomitant]
     Active Substance: FUROSEMIDE
  5. DIOVAN [Concomitant]
     Active Substance: VALSARTAN
  6. ALPRAZOLAM. [Concomitant]
     Active Substance: ALPRAZOLAM
  7. MELATONIN [Concomitant]
     Active Substance: MELATONIN
  8. ADVAIR HFA [Suspect]
     Active Substance: FLUTICASONE PROPIONATE\SALMETEROL XINAFOATE
     Dosage: UNK
     Dates: start: 200902
  9. ADVAIR HFA [Suspect]
     Active Substance: FLUTICASONE PROPIONATE\SALMETEROL XINAFOATE
     Indication: CHRONIC OBSTRUCTIVE PULMONARY DISEASE
     Dosage: 1 PUFF(S), BID
     Route: 055
     Dates: start: 20090205
  10. CARVEDILOL. [Concomitant]
     Active Substance: CARVEDILOL
  11. VITAMIN D [Concomitant]
     Active Substance: CHOLECALCIFEROL
  12. NEXIUM [Concomitant]
     Active Substance: ESOMEPRAZOLE MAGNESIUM
  13. SPIRONOLACTONE. [Concomitant]
     Active Substance: SPIRONOLACTONE
  14. NITROSTAT [Concomitant]
     Active Substance: NITROGLYCERIN
  15. MAGNESIUM OXIDE. [Concomitant]
     Active Substance: MAGNESIUM OXIDE
  16. KLOR-CON M [Concomitant]
     Active Substance: POTASSIUM CHLORIDE
  17. METFORMIN [Concomitant]
     Active Substance: METFORMIN HYDROCHLORIDE
  18. SIMVASTATIN. [Concomitant]
     Active Substance: SIMVASTATIN
  19. LOSARTAN K [Concomitant]
  20. PRADAXA [Concomitant]
     Active Substance: DABIGATRAN ETEXILATE MESYLATE
  21. TRAZODONE [Concomitant]
     Active Substance: TRAZODONE HYDROCHLORIDE

REACTIONS (5)
  - Stent placement [Unknown]
  - Myocardial infarction [Unknown]
  - Oropharyngitis fungal [Unknown]
  - Fungal oesophagitis [Unknown]
  - Cardiac failure congestive [Recovered/Resolved]

NARRATIVE: CASE EVENT DATE: 20131113
